FAERS Safety Report 4439505-6 (Version None)
Quarter: 2004Q3

REPORT INFORMATION
  Report Type: 
  Country: None (occurrence: None)
  Receive Date: 20040830
  Receipt Date: 20040816
  Transmission Date: 20050211
  Serious: Yes (Other)
  Sender: FDA-Public Use
  Company Number: 2004057415

PATIENT
  Age: 58 Year
  Sex: Male

DRUGS (8)
  1. CARDENALIN (DOXAZOSIN) [Suspect]
     Indication: ILL-DEFINED DISORDER
     Dosage: 4 MG (1 D), ORAL
     Route: 048
     Dates: start: 20030701, end: 20040101
  2. CALCIUM CARBONATE (CALCIUM CARBONATE) [Concomitant]
  3. VALSARTAN (VALSARTAN) [Concomitant]
  4. FAMOTIDINE [Concomitant]
  5. ASPIRIN [Concomitant]
  6. TAMSULOSIN HYDROCHLORIDE (TAMSULOSIN HYDROCHLORIDE) [Concomitant]
  7. FUROSEMIDE [Concomitant]
  8. ALLOPURINOL [Concomitant]

REACTIONS (2)
  - DIALYSIS [None]
  - MUSCULAR WEAKNESS [None]
